FAERS Safety Report 19391264 (Version 1)
Quarter: 2021Q2

REPORT INFORMATION
  Report Type: Spontaneous
  Country: US (occurrence: US)
  Receive Date: 20210609
  Receipt Date: 20210609
  Transmission Date: 20210717
  Serious: No
  Sender: FDA-Public Use
  Company Number: US-DRREDDYS-USA/USA/21/0136450

PATIENT
  Age: 25 Year
  Sex: Male

DRUGS (2)
  1. ZENATANE [Suspect]
     Active Substance: ISOTRETINOIN
     Indication: PRODUCT USED FOR UNKNOWN INDICATION
     Dosage: RMA ISSUE DATE: 7/ APRIL/2021 12:04:38 PM , 5/MAY/2021 2:54:54 PM
  2. ZENATANE [Suspect]
     Active Substance: ISOTRETINOIN
     Dosage: RMA ISSUE DATE : 28/ JANUARY/ 2021 1:20:29 PM, 3/ MARCH/ 2021 12:34:01 PM

REACTIONS (1)
  - Therapy cessation [Unknown]
